FAERS Safety Report 4266846-8 (Version None)
Quarter: 2004Q1

REPORT INFORMATION
  Report Type: 
  Country: None (occurrence: None)
  Receive Date: 20040108
  Receipt Date: 20030617
  Transmission Date: 20041129
  Serious: Yes (Hospitalization, Disabling)
  Sender: FDA-Public Use
  Company Number: WAES 0306USA02100

PATIENT
  Age: 48 Year
  Sex: Female
  Weight: 91 kg

DRUGS (3)
  1. ALLEGRA [Concomitant]
     Route: 048
  2. VIOXX [Suspect]
     Route: 048
     Dates: start: 20000101, end: 20010529
  3. ZOLOFT [Concomitant]
     Route: 048

REACTIONS (26)
  - ACTIVITIES OF DAILY LIVING IMPAIRED [None]
  - ANGINA UNSTABLE [None]
  - ASTHMA [None]
  - BLOOD PRESSURE DECREASED [None]
  - BREATH SOUNDS DECREASED [None]
  - BUNDLE BRANCH BLOCK LEFT [None]
  - CARDIAC FAILURE CONGESTIVE [None]
  - CARDIAC MURMUR [None]
  - CARDIOMYOPATHY [None]
  - CHEST PAIN [None]
  - DEPRESSION [None]
  - DIZZINESS [None]
  - DYSPNOEA [None]
  - ELECTROCARDIOGRAM ABNORMAL [None]
  - FATIGUE [None]
  - FLUID RETENTION [None]
  - GANGLION [None]
  - HEADACHE [None]
  - HYPERTENSION [None]
  - INSOMNIA [None]
  - MITRAL VALVE INCOMPETENCE [None]
  - OEDEMA PERIPHERAL [None]
  - PAIN [None]
  - RESPIRATORY RATE INCREASED [None]
  - TENDONITIS [None]
  - VENTRICULAR HYPOKINESIA [None]
